FAERS Safety Report 9729803 (Version 2)
Quarter: 2013Q4

REPORT INFORMATION
  Report Type: Spontaneous
  Country: US (occurrence: US)
  Receive Date: 20131204
  Receipt Date: 20131204
  Transmission Date: 20140711
  Serious: No
  Sender: FDA-Public Use
  Company Number: US-GILEAD-2009-0022545

PATIENT
  Age: 87 Year
  Sex: Female

DRUGS (14)
  1. LETAIRIS [Suspect]
     Indication: PULMONARY HYPERTENSION
     Dates: start: 20081216
  2. CARVEDILOL [Concomitant]
     Dates: start: 20090428
  3. HYDRALAZINE HCL [Concomitant]
     Dates: start: 20080205
  4. CRESTOR [Concomitant]
     Dates: start: 20090526
  5. PLAVIX [Concomitant]
     Dates: start: 20090428
  6. SPIRONOLACTONE [Concomitant]
     Dates: start: 20090428
  7. FUROSEMIDE [Concomitant]
     Indication: CARDIAC FAILURE
     Dates: start: 20080205
  8. EXELON [Concomitant]
     Indication: DEMENTIA ALZHEIMER^S TYPE
     Dates: start: 20090428
  9. PATANOL [Concomitant]
     Dates: start: 20070912
  10. OLOPATADINE HCL [Concomitant]
     Dates: start: 20080123
  11. ACTONEL [Concomitant]
     Indication: OSTEOPOROSIS
     Dates: start: 20090428
  12. OSCAL [Concomitant]
     Dates: start: 20050830
  13. LOVAZA [Concomitant]
     Dates: start: 20090428
  14. FOLIC ACID [Concomitant]
     Dates: start: 20090428

REACTIONS (1)
  - Headache [Unknown]
